FAERS Safety Report 6425944-0 (Version None)
Quarter: 2009Q4

REPORT INFORMATION
  Report Type: 
  Country: None (occurrence: None)
  Receive Date: 20091103
  Receipt Date: 20091103
  Transmission Date: 20100525
  Serious: Yes (Life-Threatening, Other)
  Sender: FDA-Public Use
  Company Number: None

PATIENT
  Sex: Female
  Weight: 58.9676 kg

DRUGS (1)
  1. DEPO-PROVERA [Suspect]
     Indication: CONTRACEPTION
     Dosage: INJECTION

REACTIONS (6)
  - ANGER [None]
  - FEELING ABNORMAL [None]
  - IRRITABILITY [None]
  - MOOD SWINGS [None]
  - SELF-INJURIOUS IDEATION [None]
  - SUICIDAL IDEATION [None]
